FAERS Safety Report 23707786 (Version 2)
Quarter: 2024Q2

REPORT INFORMATION
  Report Type: Report from Study
  Country: GR (occurrence: GR)
  Receive Date: 20240404
  Receipt Date: 20240410
  Transmission Date: 20240715
  Serious: Yes (Hospitalization, Other)
  Sender: FDA-Public Use
  Company Number: GR-ABBVIE-5704717

PATIENT
  Age: 76 Year
  Sex: Male

DRUGS (2)
  1. CARBIDOPA\LEVODOPA [Suspect]
     Active Substance: CARBIDOPA\LEVODOPA
     Indication: Parkinson^s disease
     Dosage: MD:0ML; CR:5.2ML/H(08:00-22:00),3.8ML/H(22:00 - 08:00);ED:3.5ML(24HOUR ADMINISTRATION)
     Route: 050
     Dates: start: 20220531, end: 20240331
  2. CARBIDOPA\LEVODOPA [Suspect]
     Active Substance: CARBIDOPA\LEVODOPA
     Dosage: MD:0ML; CR:5.2ML/H(08:00-22:00),3.8ML/H(22:00 - 08:00);ED:3.5ML(24HOUR ADMINISTRATION)
     Route: 050
     Dates: start: 20240402

REACTIONS (1)
  - Deep brain stimulation [Recovered/Resolved]

NARRATIVE: CASE EVENT DATE: 20240401
